FAERS Safety Report 4748365-5 (Version None)
Quarter: 2005Q3

REPORT INFORMATION
  Report Type: 
  Country: None (occurrence: None)
  Receive Date: 20050818
  Receipt Date: 20050506
  Transmission Date: 20060218
  Serious: Yes (Hospitalization)
  Sender: FDA-Public Use
  Company Number: US-MERCK-0505USA00861

PATIENT
  Age: 41 Year
  Sex: Male
  Weight: 95 kg

DRUGS (11)
  1. VIOXX [Suspect]
     Indication: SHOULDER PAIN
     Route: 048
     Dates: start: 20000926, end: 20030421
  2. VIOXX [Suspect]
     Indication: ARTHRALGIA
     Route: 048
     Dates: start: 20000926, end: 20030421
  3. ADVIL [Concomitant]
     Indication: ANALGESIC EFFECT
     Route: 065
     Dates: start: 19950501
  4. MOTRIN [Concomitant]
     Indication: ANALGESIC EFFECT
     Route: 065
     Dates: start: 19950501
  5. LIPITOR [Concomitant]
     Indication: BLOOD CHOLESTEROL INCREASED
     Route: 065
     Dates: start: 19980601
  6. HYZAAR [Concomitant]
     Route: 048
  7. PREDNISONE [Concomitant]
     Route: 065
  8. ZITHROMAX [Concomitant]
     Route: 065
  9. FLEXERIL [Concomitant]
     Indication: MUSCLE SPASMS
     Route: 065
  10. ZOCOR [Concomitant]
     Indication: BLOOD CHOLESTEROL INCREASED
     Route: 065
     Dates: start: 19980601
  11. TYLENOL [Concomitant]
     Indication: ANALGESIC EFFECT
     Route: 065
     Dates: start: 19950501

REACTIONS (7)
  - ADVERSE EVENT [None]
  - ANGINA PECTORIS [None]
  - ANGINA UNSTABLE [None]
  - CARDIAC DISORDER [None]
  - CORONARY ARTERY DISEASE [None]
  - MYOCARDIAL INFARCTION [None]
  - ROAD TRAFFIC ACCIDENT [None]
